FAERS Safety Report 5070929-2 (Version None)
Quarter: 2006Q3

REPORT INFORMATION
  Report Type: 
  Country: None (occurrence: None)
  Receive Date: 20060804
  Receipt Date: 20060725
  Transmission Date: 20061208
  Serious: Yes (Other)
  Sender: FDA-Public Use
  Company Number: HQWYE420327JUL06

PATIENT
  Sex: Male

DRUGS (5)
  1. ENBREL [Suspect]
     Indication: ANKYLOSING SPONDYLITIS
     Route: 058
     Dates: start: 20060110, end: 20060601
  2. COLCHICINE [Concomitant]
     Indication: ANKYLOSING SPONDYLITIS
     Dosage: 1500 MG, FREQUENCY UNKNOWN
  3. QUENSYL [Concomitant]
     Indication: ANKYLOSING SPONDYLITIS
     Dosage: 200 MG, FREQUENCY UNKNOWN
     Route: 048
     Dates: start: 20050501, end: 20060101
  4. METHOTREXATE [Concomitant]
     Indication: ANKYLOSING SPONDYLITIS
     Dosage: 10 MG, FREQUENCY UNKNOWN
     Dates: start: 20050501, end: 20060101
  5. SALAZOPYRIN [Concomitant]
     Indication: ANKYLOSING SPONDYLITIS
     Dosage: 2 GR, FREQUENCY UNKNOWN
     Dates: start: 20050501, end: 20060101

REACTIONS (2)
  - ALANINE AMINOTRANSFERASE INCREASED [None]
  - ASPARTATE AMINOTRANSFERASE INCREASED [None]
